FAERS Safety Report 4964149-7 (Version None)
Quarter: 2006Q1

REPORT INFORMATION
  Report Type: 
  Country: None (occurrence: None)
  Receive Date: 20060330
  Receipt Date: 20060317
  Transmission Date: 20060701
  Serious: Yes (Other)
  Sender: FDA-Public Use
  Company Number: 163-C5013-06030315

PATIENT
  Age: 85 Year
  Sex: Female
  Weight: 75.4 kg

DRUGS (12)
  1. REVLIMID [Suspect]
     Indication: MULTIPLE MYELOMA
     Dosage: 25 MG, QD ON DAYS 1-21, 028D, ORAL
     Route: 048
     Dates: start: 20060215, end: 20060222
  2. DEXAMETHASONE [Suspect]
     Indication: MULTIPLE MYELOMA
     Dosage: SEE IMAGE
     Route: 048
     Dates: start: 20060215, end: 20060222
  3. TIMOPTIC [Concomitant]
  4. OCUVITE (OCUVITE) [Concomitant]
  5. LASIX [Concomitant]
  6. CALCIUM (CALCIUM) [Concomitant]
  7. COLCHISINE (COLCHICINE) [Concomitant]
  8. ASA (ACETYSALICYLIC ACID) [Concomitant]
  9. PROCRIT [Concomitant]
  10. ATENOLOL [Concomitant]
  11. MINIZIDE (MINIZIDE) [Concomitant]
  12. IRON (IRON) [Concomitant]

REACTIONS (12)
  - BLISTER [None]
  - DERMATITIS BULLOUS [None]
  - DIZZINESS [None]
  - ERYTHEMA MULTIFORME [None]
  - FATIGUE [None]
  - HAEMOGLOBIN DECREASED [None]
  - HYPERTENSION [None]
  - NEUTROPHIL PERCENTAGE DECREASED [None]
  - PLATELET COUNT DECREASED [None]
  - STOMATITIS [None]
  - SWELLING [None]
  - VAGINAL DISORDER [None]
